FAERS Safety Report 15183271 (Version 1)
Quarter: 2018Q3

REPORT INFORMATION
  Report Type: Spontaneous
  Country: US (occurrence: US)
  Receive Date: 20180723
  Receipt Date: 20180723
  Transmission Date: 20181010
  Serious: Yes (Death)
  Sender: FDA-Public Use
  Company Number: US-LEUCADIA PHARMACEUTICALS-2018LEU00002

PATIENT
  Age: 37 Year
  Sex: Male

DRUGS (2)
  1. PENTOBARBITAL SODIUM. [Suspect]
     Active Substance: PENTOBARBITAL SODIUM
     Indication: SUICIDE ATTEMPT
     Route: 065
  2. METOCLOPRAMIDE. [Concomitant]
     Active Substance: METOCLOPRAMIDE
     Indication: SUICIDE ATTEMPT
     Route: 065

REACTIONS (2)
  - Completed suicide [Fatal]
  - Toxicity to various agents [Fatal]
